FAERS Safety Report 17544991 (Version 1)
Quarter: 2020Q1

REPORT INFORMATION
  Report Type: Spontaneous
  Country: US (occurrence: US)
  Receive Date: 20200306
  Receipt Date: 20200306
  Transmission Date: 20200409
  Serious: Yes (Hospitalization)
  Sender: FDA-Public Use
  Company Number: None

PATIENT
  Age: 76 Year
  Sex: Male
  Weight: 82 kg

DRUGS (1)
  1. ROSUVASTATIN (ROSUVASTATIN CA 40MG TAB) [Suspect]
     Active Substance: ROSUVASTATIN
     Indication: HYPERLIPIDAEMIA
     Route: 048
     Dates: start: 20190621, end: 20191210

REACTIONS (3)
  - Fall [None]
  - Rhabdomyolysis [None]
  - Hypersensitivity [None]

NARRATIVE: CASE EVENT DATE: 20191203
